FAERS Safety Report 4630651-0 (Version None)
Quarter: 2005Q2

REPORT INFORMATION
  Report Type: 
  Country: None (occurrence: None)
  Receive Date: 20050408
  Receipt Date: 20050317
  Transmission Date: 20051028
  Serious: Yes (Death)
  Sender: FDA-Public Use
  Company Number: RO-SANOFI-SYNTHELABO-A01200501649

PATIENT
  Age: 79 Year
  Sex: Female

DRUGS (8)
  1. LOKREN [Suspect]
     Indication: ANGINA PECTORIS
     Route: 048
     Dates: start: 20040809, end: 20041018
  2. LOKREN [Suspect]
     Indication: ATRIAL FIBRILLATION
     Route: 048
     Dates: start: 20040809, end: 20041018
  3. ACETYL SALICYLIC ACID USP BAT [Concomitant]
     Indication: ANGINA UNSTABLE
     Dosage: 125 MG
     Route: 048
     Dates: start: 20040809, end: 20041018
  4. ENALAPRILUM [Concomitant]
     Indication: HYPERTENSION
     Dosage: 40 MG
     Route: 048
     Dates: start: 20040809, end: 20041018
  5. DIGOXINUM [Concomitant]
     Indication: CARDIAC FAILURE
     Dosage: 0.25 MG
     Route: 048
     Dates: start: 20040809, end: 20041018
  6. FUROSEMIDUM [Concomitant]
     Indication: HYPERTENSION
     Dosage: 40 MG
     Route: 048
     Dates: start: 20040809, end: 20041018
  7. SPIRONOLACTONUM [Concomitant]
     Indication: HYPERTENSION
     Dosage: 50 MG
     Route: 048
     Dates: start: 20040809, end: 20041018
  8. FELODIPINUM [Concomitant]
     Indication: HYPERTENSION
     Dosage: 10 MG
     Route: 048
     Dates: start: 20040809, end: 20041018

REACTIONS (1)
  - DEATH [None]
